FAERS Safety Report 20525701 (Version 1)
Quarter: 2022Q1

REPORT INFORMATION
  Report Type: Spontaneous
  Country: US (occurrence: None)
  Receive Date: 20220226
  Receipt Date: 20220226
  Transmission Date: 20220424
  Serious: Yes (Disabling)
  Sender: FDA-Public Use
  Company Number: None

PATIENT
  Age: 54 Year
  Sex: Male
  Weight: 83.7 kg

DRUGS (1)
  1. REGEN-COV [Suspect]
     Active Substance: CASIRIVIMAB\IMDEVIMAB
     Indication: COVID-19
     Route: 042
     Dates: start: 20220103, end: 20220103

REACTIONS (7)
  - Fatigue [None]
  - Chest pain [None]
  - Chest discomfort [None]
  - Gastrointestinal disorder [None]
  - Muscle tightness [None]
  - Muscle tightness [None]
  - Impaired quality of life [None]

NARRATIVE: CASE EVENT DATE: 20220111
